FAERS Safety Report 10191556 (Version 1)
Quarter: 2014Q2

REPORT INFORMATION
  Report Type: Spontaneous
  Country: US (occurrence: None)
  Receive Date: 20140522
  Receipt Date: 20140522
  Transmission Date: 20141212
  Serious: No
  Sender: FDA-Public Use
  Company Number: None

PATIENT
  Age: 37 Year
  Sex: Female
  Weight: 59.42 kg

DRUGS (2)
  1. AUGMENTIN 875-125MG [Suspect]
     Indication: SINUSITIS
     Dosage: 1 PILL, TWICE DAILY, TAKEN BY MOUTH
     Route: 048
     Dates: start: 20140506
  2. AUGMENTIN 875-125 MG [Suspect]
     Indication: SINUSITIS
     Dosage: 1 PILL, TWICE DAILY, TAKEN BY MOUTH
     Route: 048
     Dates: start: 20140207, end: 20140217

REACTIONS (8)
  - Chest pain [None]
  - Insomnia [None]
  - Electrocardiogram abnormal [None]
  - Heart rate irregular [None]
  - No therapeutic response [None]
  - Pyrexia [None]
  - Sinusitis [None]
  - Anxiety [None]
